FAERS Safety Report 9885485 (Version 1)
Quarter: 2014Q1

REPORT INFORMATION
  Report Type: Spontaneous
  Country: FR (occurrence: FR)
  Receive Date: 20140210
  Receipt Date: 20140210
  Transmission Date: 20141002
  Serious: Yes (Life-Threatening, Hospitalization, Other)
  Sender: FDA-Public Use
  Company Number: FR-009507513-1402FRA001711

PATIENT
  Age: 57 Year
  Sex: Male

DRUGS (2)
  1. CELESTENE [Suspect]
     Indication: TONSILLITIS
     Dosage: UNK
     Route: 048
     Dates: start: 20120111, end: 20120116
  2. ROCEPHIN [Suspect]
     Indication: TONSILLITIS
     Dosage: UNK
     Route: 051
     Dates: start: 20120111, end: 20120116

REACTIONS (2)
  - Septic shock [Recovered/Resolved]
  - Cellulitis [Recovered/Resolved with Sequelae]
